FAERS Safety Report 12893472 (Version 1)
Quarter: 2016Q4

REPORT INFORMATION
  Report Type: Spontaneous
  Country: US (occurrence: US)
  Receive Date: 20161027
  Receipt Date: 20161027
  Transmission Date: 20170207
  Serious: Yes (Life-Threatening)
  Sender: FDA-Public Use
  Company Number: None

PATIENT
  Age: 13 Year
  Sex: Male
  Weight: 45.45 kg

DRUGS (3)
  1. NEBULIZER [Concomitant]
     Active Substance: DEVICE
  2. PROAIR HFA [Suspect]
     Active Substance: ALBUTEROL SULFATE
     Indication: ASTHMA
     Route: 055
     Dates: start: 20161014
  3. SYMBICORT [Suspect]
     Active Substance: BUDESONIDE\FORMOTEROL FUMARATE DIHYDRATE
     Indication: ASTHMA
     Dosage: 3 PUFF(S) TWICE A DAY RESPIRATORY (INHALATION)?
     Route: 055
     Dates: start: 20160816

REACTIONS (1)
  - Chest pain [None]

NARRATIVE: CASE EVENT DATE: 20160824
